FAERS Safety Report 6287204-0 (Version None)
Quarter: 2009Q3

REPORT INFORMATION
  Report Type: 
  Country: None (occurrence: None)
  Receive Date: 20090728
  Receipt Date: 20090713
  Transmission Date: 20100115
  Serious: Yes (Death, Other)
  Sender: FDA-Public Use
  Company Number: FR-PFIZER INC-2009239388

PATIENT
  Age: 8 Year
  Sex: Male

DRUGS (3)
  1. CELECOXIB [Suspect]
     Dosage: UNK
  2. ETOPOSIDE [Suspect]
     Dosage: 25MG/M2/DAY
  3. CYCLOPHOSPHAMIDE [Suspect]
     Dosage: 30MG/M2/DAY

REACTIONS (1)
  - SUBDURAL HAEMATOMA [None]
